FAERS Safety Report 19450577 (Version 1)
Quarter: 2021Q2

REPORT INFORMATION
  Report Type: Spontaneous
  Country: US (occurrence: US)
  Receive Date: 20210622
  Receipt Date: 20210622
  Transmission Date: 20210717
  Serious: Yes (Hospitalization, Other)
  Sender: FDA-Public Use
  Company Number: US-TAKEDA-2021TUS038428

PATIENT
  Age: 68 Year
  Sex: Female

DRUGS (4)
  1. IMITREX [Concomitant]
     Active Substance: SUMATRIPTAN SUCCINATE
     Indication: HEADACHE
     Dosage: UNK
  2. PHENERGAN [Concomitant]
     Active Substance: PROMETHAZINE HYDROCHLORIDE
     Dosage: UNK
  3. LOMOTIL [Concomitant]
     Active Substance: ATROPINE SULFATE\DIPHENOXYLATE HYDROCHLORIDE
     Dosage: UNK
  4. ENTYVIO [Suspect]
     Active Substance: VEDOLIZUMAB
     Indication: CROHN^S DISEASE
     Dosage: UNK
     Route: 065

REACTIONS (20)
  - Blood pressure decreased [Unknown]
  - Diverticulitis [Unknown]
  - Musculoskeletal stiffness [Unknown]
  - Back pain [Unknown]
  - Urinary tract infection [Unknown]
  - Visual impairment [Unknown]
  - Musculoskeletal disorder [Unknown]
  - Liver disorder [Unknown]
  - Fatigue [Unknown]
  - Chest pain [Unknown]
  - Blister [Unknown]
  - Chest discomfort [Unknown]
  - Muscle spasms [Unknown]
  - Myalgia [Unknown]
  - Skin exfoliation [Unknown]
  - Impaired healing [Unknown]
  - Sinus congestion [Unknown]
  - Cystitis [Unknown]
  - Abdominal discomfort [Unknown]
  - Headache [Unknown]
